FAERS Safety Report 22163463 (Version 1)
Quarter: 2023Q2

REPORT INFORMATION
  Report Type: Spontaneous
  Country: TH (occurrence: ES)
  Receive Date: 20230401
  Receipt Date: 20230401
  Transmission Date: 20230721
  Serious: Yes (Hospitalization, Other)
  Sender: FDA-Public Use
  Company Number: TH-MLMSERVICE-20230315-4157961-1

PATIENT
  Age: 58 Year
  Sex: Male

DRUGS (7)
  1. TACROLIMUS [Suspect]
     Active Substance: TACROLIMUS
     Indication: Immunosuppressant drug therapy
  2. PREDNISONE [Suspect]
     Active Substance: PREDNISONE
     Indication: Immunosuppressant drug therapy
  3. CALCIUM [Concomitant]
     Active Substance: CALCIUM
  4. ACENOCOUMAROL [Concomitant]
     Active Substance: ACENOCOUMAROL
  5. OMEPRAZOLE [Concomitant]
     Active Substance: OMEPRAZOLE
  6. DARBEPOETIN ALFA [Concomitant]
     Active Substance: DARBEPOETIN ALFA
  7. ATORVASTATIN [Concomitant]
     Active Substance: ATORVASTATIN

REACTIONS (5)
  - Klebsiella test positive [Unknown]
  - Rhodococcus infection [Recovered/Resolved]
  - Pseudomonas test positive [Unknown]
  - Lung abscess [Recovered/Resolved]
  - Malacoplakia [Unknown]
